FAERS Safety Report 12121478 (Version 1)
Quarter: 2016Q1

REPORT INFORMATION
  Report Type: Spontaneous
  Country: US (occurrence: US)
  Receive Date: 20160226
  Receipt Date: 20160226
  Transmission Date: 20160526
  Serious: No
  Sender: FDA-Public Use
  Company Number: US-ALLERGAN-1409776US

PATIENT
  Age: 43 Year
  Sex: Female

DRUGS (2)
  1. REFRESH OPTIVE [Suspect]
     Active Substance: CARBOXYMETHYLCELLULOSE SODIUM\GLYCERIN
     Indication: DRY EYE
     Dosage: UNK, TID
     Route: 047
     Dates: start: 2010
  2. MTV [Concomitant]

REACTIONS (3)
  - Eye discharge [Unknown]
  - Eye irritation [Unknown]
  - Drug ineffective [Unknown]
